FAERS Safety Report 5098779-1 (Version None)
Quarter: 2006Q3

REPORT INFORMATION
  Report Type: 
  Country: None (occurrence: None)
  Receive Date: 20060907
  Receipt Date: 20060825
  Transmission Date: 20061208
  Serious: Yes (Hospitalization, Other)
  Sender: FDA-Public Use
  Company Number: US-AMGEN-US191526

PATIENT
  Age: 82 Year
  Sex: Male
  Weight: 59 kg

DRUGS (1)
  1. PROCRIT [Suspect]
     Indication: MYELODYSPLASTIC SYNDROME
     Route: 058

REACTIONS (2)
  - APLASIA PURE RED CELL [None]
  - CHEST PAIN [None]
